FAERS Safety Report 16332340 (Version 14)
Quarter: 2021Q3

REPORT INFORMATION
  Report Type: Spontaneous
  Country: US (occurrence: US)
  Receive Date: 20190520
  Receipt Date: 20210903
  Transmission Date: 20211014
  Serious: Yes (Other)
  Sender: FDA-Public Use
  Company Number: US-PFIZER INC-2019202942

PATIENT
  Age: 57 Year
  Sex: Female
  Weight: 127.01 kg

DRUGS (4)
  1. RELPAX [Suspect]
     Active Substance: ELETRIPTAN HYDROBROMIDE
     Indication: BONE PAIN
  2. RELPAX [Suspect]
     Active Substance: ELETRIPTAN HYDROBROMIDE
     Indication: MIGRAINE
     Dosage: 40 MG, AS NEEDED (1 TABLET AS NEEDED, DO NOT EXCEED 2 WITHIN 24 HOURS)
     Route: 048
     Dates: start: 2010
  3. RELPAX [Suspect]
     Active Substance: ELETRIPTAN HYDROBROMIDE
     Indication: SPINAL DISORDER
     Dosage: 40 MG, AS NEEDED (2 EVERY 6 HOURS)
     Route: 048
  4. RELPAX [Suspect]
     Active Substance: ELETRIPTAN HYDROBROMIDE
     Indication: HEADACHE
     Dosage: UNK
     Route: 048

REACTIONS (15)
  - Gait disturbance [Not Recovered/Not Resolved]
  - Liver disorder [Not Recovered/Not Resolved]
  - Back disorder [Not Recovered/Not Resolved]
  - Oral disorder [Unknown]
  - Swelling [Not Recovered/Not Resolved]
  - Memory impairment [Unknown]
  - Hepatic enzyme increased [Not Recovered/Not Resolved]
  - Hypoaesthesia [Unknown]
  - Pain [Not Recovered/Not Resolved]
  - Peripheral coldness [Not Recovered/Not Resolved]
  - Sinusitis [Unknown]
  - Illness [Not Recovered/Not Resolved]
  - Anger [Unknown]
  - Vomiting [Unknown]
  - Cataract [Unknown]

NARRATIVE: CASE EVENT DATE: 2017
